FAERS Safety Report 19763098 (Version 2)
Quarter: 2021Q3

REPORT INFORMATION
  Report Type: Spontaneous
  Country: NL (occurrence: NL)
  Receive Date: 20210830
  Receipt Date: 20210910
  Transmission Date: 20211014
  Serious: No
  Sender: FDA-Public Use
  Company Number: NL-PERRIGO-21NL011424

PATIENT

DRUGS (2)
  1. PARACETAMOL [Suspect]
     Active Substance: ACETAMINOPHEN
     Indication: PAIN
     Dosage: UNK
     Route: 065
  2. VOLTAREN [Suspect]
     Active Substance: DICLOFENAC SODIUM
     Indication: PAIN
     Dosage: UNK
     Route: 065

REACTIONS (10)
  - Incontinence [Unknown]
  - Fatigue [Unknown]
  - Sleep apnoea syndrome [Unknown]
  - Urinary incontinence [Unknown]
  - Pain [Unknown]
  - Condition aggravated [Unknown]
  - Sleep disorder [Unknown]
  - Hyperhidrosis [Unknown]
  - Drug ineffective [Unknown]
  - Pain in extremity [Unknown]
